FAERS Safety Report 9748438 (Version 2)
Quarter: 2013Q4

REPORT INFORMATION
  Report Type: Report from Study
  Country: BG (occurrence: BG)
  Receive Date: 20131212
  Receipt Date: 20131226
  Transmission Date: 20140711
  Serious: Yes (Hospitalization)
  Sender: FDA-Public Use
  Company Number: BG-ROCHE-1314725

PATIENT
  Age: 70 Year
  Sex: Female
  Weight: 60 kg

DRUGS (30)
  1. RITUXIMAB [Suspect]
     Indication: B-CELL LYMPHOMA
     Route: 042
  2. RHUPH20/RITUXIMAB [Suspect]
     Indication: B-CELL LYMPHOMA
     Dosage: INDUCTION THERAPY
     Route: 058
  3. RHUPH20/RITUXIMAB [Suspect]
     Dosage: MAINTAINANCE CHEMOTHERAPY. LAST DOSE PRIOR TO SAE : 01/NOV/2013.
     Route: 058
     Dates: start: 20130221
  4. FLUDARABINE [Suspect]
     Indication: B-CELL LYMPHOMA
     Dosage: X50 MG 2 DAYS; 6 COURSES
     Route: 065
     Dates: start: 201008, end: 201101
  5. CYCLOPHOSPHAMIDE [Suspect]
     Indication: B-CELL LYMPHOMA
     Dosage: X500 MG 3 DAYS
     Route: 065
     Dates: start: 201008, end: 201101
  6. METHYLPREDNISOLONE [Concomitant]
     Route: 065
     Dates: start: 20130221, end: 20130221
  7. PARACETAMOL [Concomitant]
     Route: 065
     Dates: start: 20130221, end: 20130221
  8. CLEMASTINE [Concomitant]
     Route: 065
     Dates: start: 20130221, end: 20130221
  9. DEXAMETHASONE [Concomitant]
     Route: 065
     Dates: start: 20130322, end: 20130322
  10. DEXAMETHASONE [Concomitant]
     Route: 065
     Dates: start: 20130418, end: 20130418
  11. DEXAMETHASONE [Concomitant]
     Route: 065
     Dates: start: 20130516, end: 20130516
  12. DEXAMETHASONE [Concomitant]
     Route: 065
     Dates: start: 20130613, end: 20130613
  13. DEXAMETHASONE [Concomitant]
     Route: 065
     Dates: start: 20130711, end: 20130711
  14. DEXAMETHASONE [Concomitant]
     Route: 065
     Dates: start: 20130808, end: 20130808
  15. DEXAMETHASONE [Concomitant]
     Route: 065
     Dates: start: 20130905, end: 20130905
  16. LORATADINE [Concomitant]
     Route: 065
     Dates: start: 20130322, end: 20130326
  17. LORATADINE [Concomitant]
     Route: 065
     Dates: start: 20130418, end: 20130422
  18. LORATADINE [Concomitant]
     Route: 065
     Dates: start: 20130516, end: 20130520
  19. LORATADINE [Concomitant]
     Route: 065
     Dates: start: 20130613, end: 20130617
  20. LORATADINE [Concomitant]
     Route: 065
     Dates: start: 20130711, end: 20130711
  21. LORATADINE [Concomitant]
     Route: 065
     Dates: start: 20130808, end: 20130808
  22. LORATADINE [Concomitant]
     Route: 065
     Dates: start: 20130905, end: 20130905
  23. PEGFILGRASTIM [Concomitant]
     Route: 065
     Dates: start: 20130224, end: 20130224
  24. PEGFILGRASTIM [Concomitant]
     Route: 065
     Dates: start: 20130324, end: 20130324
  25. PEGFILGRASTIM [Concomitant]
     Route: 065
     Dates: start: 20130421, end: 20130421
  26. PEGFILGRASTIM [Concomitant]
     Route: 065
     Dates: start: 20130519, end: 20130519
  27. PEGFILGRASTIM [Concomitant]
     Route: 065
     Dates: start: 20130617, end: 20130617
  28. PEGFILGRASTIM [Concomitant]
     Route: 065
     Dates: start: 20130714, end: 20130714
  29. PEGFILGRASTIM [Concomitant]
     Route: 065
     Dates: start: 20130811, end: 20130811
  30. PEGFILGRASTIM [Concomitant]
     Route: 065
     Dates: start: 20130908, end: 20130908

REACTIONS (1)
  - Bone marrow failure [Not Recovered/Not Resolved]
